FAERS Safety Report 13057724 (Version 1)
Quarter: 2016Q4

REPORT INFORMATION
  Report Type: Spontaneous
  Country: US (occurrence: US)
  Receive Date: 20161223
  Receipt Date: 20161223
  Transmission Date: 20170207
  Serious: Yes (Death, Hospitalization)
  Sender: FDA-Public Use
  Company Number: US-TAIHO ONCOLOGY INC-EU-2016-03214

PATIENT
  Age: 54 Year
  Sex: Male

DRUGS (6)
  1. IBUPROFEN. [Concomitant]
     Active Substance: IBUPROFEN
     Dosage: NI
  2. LOPERAMIDE [Concomitant]
     Active Substance: LOPERAMIDE
     Dosage: NI
  3. LONSURF [Suspect]
     Active Substance: TIPIRACIL HYDROCHLORIDE\TRIFLURIDINE
     Indication: CARCINOID TUMOUR
     Route: 048
     Dates: start: 20161107
  4. AMBIEN [Concomitant]
     Active Substance: ZOLPIDEM TARTRATE
     Dosage: NI
  5. LISINOPRIL. [Concomitant]
     Active Substance: LISINOPRIL
     Dosage: NI
  6. LORAZEPAM. [Concomitant]
     Active Substance: LORAZEPAM
     Dosage: NI

REACTIONS (4)
  - Off label use [Unknown]
  - Septic shock [Fatal]
  - Disease progression [Unknown]
  - Intestinal perforation [Fatal]

NARRATIVE: CASE EVENT DATE: 20161107
